FAERS Safety Report 21474590 (Version 1)
Quarter: 2022Q4

REPORT INFORMATION
  Report Type: Spontaneous
  Country: US (occurrence: None)
  Receive Date: 20221018
  Receipt Date: 20221018
  Transmission Date: 20230113
  Serious: No
  Sender: FDA-Public Use
  Company Number: 2022A326362

PATIENT
  Age: 57 Year
  Sex: Male

DRUGS (3)
  1. CALQUENCE [Suspect]
     Active Substance: ACALABRUTINIB
     Route: 048
  2. CRESTOR [Suspect]
     Active Substance: ROSUVASTATIN CALCIUM
     Route: 048
  3. CAPRELSA [Suspect]
     Active Substance: VANDETANIB
     Indication: Thyroid cancer
     Route: 048
     Dates: start: 20200224

REACTIONS (7)
  - Myalgia [Unknown]
  - Pain in extremity [Unknown]
  - Skin disorder [Unknown]
  - Acne [Unknown]
  - Condition aggravated [Unknown]
  - Photosensitivity reaction [Unknown]
  - Hypertension [Unknown]
